FAERS Safety Report 24621146 (Version 2)
Quarter: 2024Q4

REPORT INFORMATION
  Report Type: Report from Study
  Country: US (occurrence: US)
  Receive Date: 20241114
  Receipt Date: 20241209
  Transmission Date: 20250115
  Serious: Yes (Hospitalization, Other)
  Sender: Pyros Pharmaceuticals
  Company Number: US-PYROS PHARMACEUTICALS, INC-2024-PYROS-US000121

PATIENT
  Age: 0 Year
  Sex: Male
  Weight: 11.1 kg

DRUGS (3)
  1. VIGAFYDE [Suspect]
     Active Substance: VIGABATRIN
     Indication: Infantile spasms
     Dosage: 250 MG (2.5 ML), BID
     Route: 048
     Dates: start: 20241027, end: 202411
  2. VIGAFYDE [Suspect]
     Active Substance: VIGABATRIN
     Dosage: 575 MG (5.75 ML), BID
     Route: 048
     Dates: start: 202411, end: 202411
  3. VIGAFYDE [Suspect]
     Active Substance: VIGABATRIN
     Dosage: UNK
     Route: 048
     Dates: start: 202411

REACTIONS (2)
  - Seizure [Not Recovered/Not Resolved]
  - Drug ineffective [Not Recovered/Not Resolved]

NARRATIVE: CASE EVENT DATE: 20241101
